FAERS Safety Report 21487131 (Version 1)
Quarter: 2022Q4

REPORT INFORMATION
  Report Type: Spontaneous
  Country: US (occurrence: None)
  Receive Date: 20221020
  Receipt Date: 20221020
  Transmission Date: 20230112
  Serious: Yes (Disabling)
  Sender: FDA-Public Use
  Company Number: None

PATIENT
  Age: 58 Year
  Sex: Female
  Weight: 117 kg

DRUGS (9)
  1. VENLAFAXINE [Suspect]
     Active Substance: VENLAFAXINE HYDROCHLORIDE
     Indication: Anxiety
     Dosage: OTHER QUANTITY : 90 TABLET(S);?FREQUENCY : DAILY;?
     Route: 048
     Dates: start: 20221003, end: 20221017
  2. VENLAFAXINE [Concomitant]
     Active Substance: VENLAFAXINE HYDROCHLORIDE
  3. OXYBUTYNIN [Concomitant]
     Active Substance: OXYBUTYNIN
  4. MELOXICAM [Concomitant]
     Active Substance: MELOXICAM
  5. XANAX [Concomitant]
     Active Substance: ALPRAZOLAM
  6. LORATADINE [Concomitant]
     Active Substance: LORATADINE
  7. LANSOPRAZOLE [Concomitant]
     Active Substance: LANSOPRAZOLE
  8. MELATONIN [Concomitant]
     Active Substance: MELATONIN
  9. VITAMIN D3 [Concomitant]
     Active Substance: CHOLECALCIFEROL

REACTIONS (10)
  - Product substitution issue [None]
  - Therapeutic response changed [None]
  - Headache [None]
  - Photosensitivity reaction [None]
  - Pain [None]
  - Drug withdrawal headache [None]
  - Electric shock sensation [None]
  - Incorrect dose administered [None]
  - Product label issue [None]
  - Neck pain [None]

NARRATIVE: CASE EVENT DATE: 20221006
